FAERS Safety Report 25163484 (Version 4)
Quarter: 2025Q3

REPORT INFORMATION
  Report Type: Spontaneous
  Country: EU (occurrence: EU)
  Receive Date: 20250404
  Receipt Date: 20250810
  Transmission Date: 20251020
  Serious: Yes (Death, Other)
  Sender: ALEXION PHARMACEUTICALS
  Company Number: EU-AstraZeneca-CH-00840755A

PATIENT
  Age: 89 Year
  Sex: Male

DRUGS (1)
  1. DAPAGLIFLOZIN [Suspect]
     Active Substance: DAPAGLIFLOZIN
     Indication: Renal failure
     Dosage: 5 MILLIGRAM, QD
     Dates: start: 20250324, end: 20250401

REACTIONS (3)
  - Urosepsis [Fatal]
  - Urinary tract infection [Fatal]
  - Off label use [Unknown]
